FAERS Safety Report 7430514-1 (Version None)
Quarter: 2011Q2

REPORT INFORMATION
  Report Type: 
  Country: None (occurrence: None)
  Receive Date: 20110421
  Receipt Date: 20100309
  Transmission Date: 20111010
  Serious: No
  Sender: FDA-Public Use
  Company Number: US-ASTRAZENECA-2010SE10297

PATIENT
  Age: 67 Year
  Sex: Female

DRUGS (6)
  1. ALDACTONE [Concomitant]
     Indication: CARDIAC FAILURE CONGESTIVE
  2. SYNTHROID [Concomitant]
     Indication: HYPOTHYROIDISM
  3. PREVACID [Concomitant]
     Indication: GASTROOESOPHAGEAL REFLUX DISEASE
  4. TOPROL-XL [Suspect]
     Indication: HYPERTENSION
     Route: 048
  5. LEXAPRO [Interacting]
     Indication: ANXIETY
     Route: 048
     Dates: start: 20100101
  6. DEMADEX [Concomitant]
     Indication: CARDIAC FAILURE CONGESTIVE

REACTIONS (2)
  - OEDEMA PERIPHERAL [None]
  - DRUG INTERACTION [None]
